FAERS Safety Report 8573000-8 (Version None)
Quarter: 2012Q3

REPORT INFORMATION
  Report Type: 
  Country: None (occurrence: None)
  Receive Date: 20120806
  Receipt Date: 20120802
  Transmission Date: 20120928
  Serious: Yes (Hospitalization)
  Sender: FDA-Public Use
  Company Number: JP-PFIZER INC-2012187416

PATIENT
  Age: 77 Year
  Sex: Male

DRUGS (1)
  1. VARENICLINE [Suspect]
     Dosage: UNK

REACTIONS (1)
  - CEREBRAL INFARCTION [None]
